FAERS Safety Report 9453227 (Version 1)
Quarter: 2013Q3

REPORT INFORMATION
  Report Type: Spontaneous
  Country: CA (occurrence: None)
  Receive Date: 20130806
  Receipt Date: 20130806
  Transmission Date: 20140515
  Serious: Yes (Hospitalization)
  Sender: FDA-Public Use
  Company Number: 2013000029

PATIENT
  Age: 70 Year
  Sex: Male

DRUGS (5)
  1. ACEON [Suspect]
     Indication: PRODUCT USED FOR UNKNOWN INDICATION
  2. TARCEVA [Suspect]
     Dosage: 150 MG, QD, OCCLUSIVE
     Dates: start: 20120420, end: 20120517
  3. LIPITOR [Suspect]
  4. ZANTAC [Suspect]
  5. ZYPREXA [Suspect]

REACTIONS (2)
  - Palmar-plantar erythrodysaesthesia syndrome [None]
  - Pancreatitis [None]
